FAERS Safety Report 19659991 (Version 1)
Quarter: 2021Q3

REPORT INFORMATION
  Report Type: Spontaneous
  Country: US (occurrence: US)
  Receive Date: 20210805
  Receipt Date: 20210805
  Transmission Date: 20211014
  Serious: No
  Sender: FDA-Public Use
  Company Number: US-CELGENEUS-USA-20210706797

PATIENT
  Age: 53 Year
  Sex: Male
  Weight: 83.99 kg

DRUGS (2)
  1. ZEPOSIA [Suspect]
     Active Substance: OZANIMOD HYDROCHLORIDE
     Indication: RELAPSING MULTIPLE SCLEROSIS
     Dosage: .23 MILLIGRAM
     Route: 048
     Dates: start: 20210724
  2. FENOFIBRATE. [Concomitant]
     Active Substance: FENOFIBRATE
     Indication: BLOOD CHOLESTEROL DECREASED
     Route: 065

REACTIONS (4)
  - Rash pruritic [Unknown]
  - Feeling abnormal [Unknown]
  - Dizziness [Unknown]
  - Acne [Unknown]

NARRATIVE: CASE EVENT DATE: 20210724
